FAERS Safety Report 14705035 (Version 1)
Quarter: 2018Q2

REPORT INFORMATION
  Report Type: Spontaneous
  Country: US (occurrence: US)
  Receive Date: 20180402
  Receipt Date: 20180402
  Transmission Date: 20180711
  Serious: No
  Sender: FDA-Public Use
  Company Number: US-SUNOVION-2018SUN001186

PATIENT
  Age: 64 Year
  Sex: Female
  Weight: 81.63 kg

DRUGS (2)
  1. ZOLOFT [Concomitant]
     Active Substance: SERTRALINE HYDROCHLORIDE
     Dosage: UNK, QD
     Route: 048
  2. LATUDA [Suspect]
     Active Substance: LURASIDONE HYDROCHLORIDE
     Indication: DEPRESSION
     Dosage: 40 MG, QD
     Route: 048
     Dates: start: 201702

REACTIONS (5)
  - Flushing [Unknown]
  - Increased appetite [Unknown]
  - Product use in unapproved indication [Unknown]
  - Constipation [Unknown]
  - Feeling hot [Unknown]

NARRATIVE: CASE EVENT DATE: 201802
